FAERS Safety Report 8759762 (Version 2)
Quarter: 2013Q3

REPORT INFORMATION
  Report Type: Report from Study
  Country: JP (occurrence: JP)
  Receive Date: 20120829
  Receipt Date: 20130729
  Transmission Date: 20140515
  Serious: Yes (Hospitalization)
  Sender: FDA-Public Use
  Company Number: JP-VERTEX PHARMACEUTICAL INC.-2012-020184

PATIENT
  Age: 43 Year
  Sex: Male

DRUGS (7)
  1. VX-950 (TELAPREVIR) [Suspect]
     Indication: HEPATITIS C
     Dosage: 2250 MG, QD
     Route: 048
     Dates: start: 20120210, end: 20120503
  2. RIBAVIRIN [Suspect]
     Indication: HEPATITIS C
     Dosage: 800 MG, QD
     Route: 048
     Dates: start: 20120210, end: 20120726
  3. PEGINTERFERON ALFA-2B [Suspect]
     Indication: HEPATITIS C
     Dosage: 1.5 ?G/KG, QW
     Route: 058
     Dates: start: 20120210, end: 20120720
  4. THYRADIN S [Concomitant]
     Dosage: 100 ?G, QW
     Route: 048
  5. THYRADIN S [Concomitant]
     Dosage: 50 ?G, UNK
     Route: 048
  6. ALLEGRA [Concomitant]
     Dosage: 120 MG, QD
     Route: 048
  7. GASTER D [Concomitant]
     Dosage: 40 MG, QD
     Route: 048

REACTIONS (1)
  - Tenosynovitis [Recovered/Resolved]
